FAERS Safety Report 7766689-4 (Version None)
Quarter: 2011Q3

REPORT INFORMATION
  Report Type: 
  Country: None (occurrence: None)
  Receive Date: 20110922
  Receipt Date: 20110913
  Transmission Date: 20111222
  Serious: Yes (Hospitalization)
  Sender: FDA-Public Use
  Company Number: NO-JNJFOC-20110905989

PATIENT
  Age: 68 Year
  Sex: Male

DRUGS (3)
  1. RISPERDAL [Suspect]
     Indication: HALLUCINATION
     Route: 065
  2. UNKNOWN MEDICATION [Concomitant]
     Indication: PRODUCT USED FOR UNKNOWN INDICATION
     Route: 065
  3. RISPERDAL [Suspect]
     Indication: PSYCHOTIC DISORDER
     Route: 065

REACTIONS (2)
  - INSOMNIA [None]
  - DEMENTIA WITH LEWY BODIES [None]
